FAERS Safety Report 5382047-4 (Version None)
Quarter: 2007Q3

REPORT INFORMATION
  Report Type: 
  Country: None (occurrence: None)
  Receive Date: 20070705
  Receipt Date: 20070622
  Transmission Date: 20080115
  Serious: Yes (Hospitalization, Other)
  Sender: FDA-Public Use
  Company Number: 07072163

PATIENT
  Sex: Female

DRUGS (2)
  1. WARFARIN SODIUM [Suspect]
     Dosage: 5X, ORAL
     Route: 048
  2. WARFARIN SODIUM [Suspect]
     Dosage: ORAL
     Route: 048

REACTIONS (1)
  - DRUG DISPENSING ERROR [None]
